FAERS Safety Report 10555442 (Version 2)
Quarter: 2015Q2

REPORT INFORMATION
  Report Type: Spontaneous
  Country: IE (occurrence: IE)
  Receive Date: 20141030
  Receipt Date: 20150626
  Transmission Date: 20150821
  Serious: Yes (Other)
  Sender: FDA-Public Use
  Company Number: IE-UCBSA-2014016380

PATIENT
  Age: 8 Year
  Sex: Male

DRUGS (1)
  1. METHYLPHENIDATE HYDROCHLORIDE. [Suspect]
     Active Substance: METHYLPHENIDATE HYDROCHLORIDE
     Indication: ATTENTION DEFICIT/HYPERACTIVITY DISORDER
     Dosage: 20 MG, ONCE DAILY (QD)
     Route: 048
     Dates: start: 201305, end: 201410

REACTIONS (2)
  - Drug dose omission [Unknown]
  - Tic [Not Recovered/Not Resolved]

NARRATIVE: CASE EVENT DATE: 201410
